FAERS Safety Report 13503818 (Version 5)
Quarter: 2017Q2

REPORT INFORMATION
  Report Type: Spontaneous
  Country: US (occurrence: US)
  Receive Date: 20170502
  Receipt Date: 20170628
  Transmission Date: 20170830
  Serious: Yes (Hospitalization, Other)
  Sender: FDA-Public Use
  Company Number: US-TEVA-764038USA

PATIENT
  Age: 79 Year
  Sex: Male
  Weight: 68 kg

DRUGS (12)
  1. AMIODARONE [Interacting]
     Active Substance: AMIODARONE
     Dosage: 200 MILLIGRAM DAILY;
     Route: 042
  2. MYRBETRIQ [Interacting]
     Active Substance: MIRABEGRON
     Indication: BLADDER SPASM
  3. MYRBETRIQ [Interacting]
     Active Substance: MIRABEGRON
     Indication: MICTURITION URGENCY
     Dosage: 25 MILLIGRAM DAILY;
     Route: 048
     Dates: start: 20151203, end: 20151221
  4. PRAVASTATIN. [Concomitant]
     Active Substance: PRAVASTATIN
     Route: 065
  5. ASPIRIN. [Concomitant]
     Active Substance: ASPIRIN
     Route: 065
  6. AMIODARONE [Interacting]
     Active Substance: AMIODARONE
     Indication: CARDIAC DISORDER
     Dosage: 200 MILLIGRAM DAILY;
     Route: 048
     Dates: start: 2011
  7. MYRBETRIQ [Interacting]
     Active Substance: MIRABEGRON
     Indication: BENIGN PROSTATIC HYPERPLASIA
  8. AMIODARONE [Suspect]
     Active Substance: AMIODARONE
     Indication: ATRIAL FIBRILLATION
     Route: 065
  9. MYRBETRIQ [Interacting]
     Active Substance: MIRABEGRON
     Indication: POLLAKIURIA
     Dosage: 25 MILLIGRAM DAILY;
     Route: 048
     Dates: start: 201509
  10. ASPIRIN. [Concomitant]
     Active Substance: ASPIRIN
     Route: 065
  11. TYLENOL [Concomitant]
     Active Substance: ACETAMINOPHEN
  12. MYRBETRIQ [Interacting]
     Active Substance: MIRABEGRON
     Indication: BLADDER IRRITATION

REACTIONS (19)
  - Temperature intolerance [Not Recovered/Not Resolved]
  - Injury [Unknown]
  - Nail bed tenderness [Recovered/Resolved]
  - Nail disorder [Not Recovered/Not Resolved]
  - Nail ridging [Not Recovered/Not Resolved]
  - Visual impairment [Not Recovered/Not Resolved]
  - Hyperaesthesia [Recovering/Resolving]
  - Cataract [Not Recovered/Not Resolved]
  - Burns second degree [Unknown]
  - Ingrowing nail [Not Recovered/Not Resolved]
  - Finger deformity [Not Recovered/Not Resolved]
  - Hypersensitivity [Recovered/Resolved]
  - Peripheral swelling [Recovered/Resolved]
  - Onychoclasis [Recovering/Resolving]
  - Erythema [Recovering/Resolving]
  - Skin exfoliation [Not Recovered/Not Resolved]
  - Drug interaction [Unknown]
  - Chorioretinopathy [Recovering/Resolving]
  - Arthralgia [Recovered/Resolved]

NARRATIVE: CASE EVENT DATE: 201512
